FAERS Safety Report 7403128-7 (Version None)
Quarter: 2011Q2

REPORT INFORMATION
  Report Type: 
  Country: None (occurrence: None)
  Receive Date: 20110408
  Receipt Date: 20110405
  Transmission Date: 20111010
  Serious: Yes (Death, Other)
  Sender: FDA-Public Use
  Company Number: JP-SANOFI-AVENTIS-2011SA007077

PATIENT
  Age: 80 Year
  Sex: Male
  Weight: 54.5 kg

DRUGS (12)
  1. URINARY ANTISPASMODICS [Concomitant]
     Route: 048
  2. TAXOTERE [Suspect]
     Indication: CHEMOTHERAPY
     Dosage: 60-65 MG/M2
     Route: 041
     Dates: start: 20110119, end: 20110119
  3. KYTRIL [Concomitant]
     Route: 041
     Dates: start: 20110119, end: 20110119
  4. DECADRON [Concomitant]
     Indication: ALLERGY PROPHYLAXIS
     Route: 041
     Dates: start: 20110119, end: 20110119
  5. EPADEL [Concomitant]
     Route: 048
  6. TAXOTERE [Suspect]
     Indication: PROSTATE CANCER
     Dosage: 60-65 MG/M2
     Route: 041
     Dates: start: 20110119, end: 20110119
  7. FRANDOL [Concomitant]
     Route: 061
  8. DECADRON [Concomitant]
     Route: 048
     Dates: start: 20100601, end: 20110127
  9. UFT [Concomitant]
     Dates: start: 20100601, end: 20110101
  10. DECADRON [Concomitant]
     Route: 048
     Dates: start: 20100601, end: 20110127
  11. ALL OTHER THERAPEUTIC PRODUCTS [Concomitant]
     Route: 048
  12. DECADRON [Concomitant]
     Indication: PROSTATE CANCER
     Route: 041
     Dates: start: 20110119, end: 20110119

REACTIONS (2)
  - INTERSTITIAL LUNG DISEASE [None]
  - NEUTROPENIA [None]
